FAERS Safety Report 8810019 (Version 1)
Quarter: 2012Q4

REPORT INFORMATION
  Report Type: 
  Country: GB (occurrence: GB)
  Receive Date: 20120926
  Receipt Date: 20120926
  Transmission Date: 20130627
  Serious: Yes (Hospitalization)
  Sender: FDA-Public Use
  Company Number: PHHY2012GB082054

PATIENT
  Age: 80 Year

DRUGS (12)
  1. PERINDOPRIL [Suspect]
     Dosage: 4 mg
     Route: 048
     Dates: end: 20120903
  2. AMITRIPTYLINE [Suspect]
     Dosage: 30 mg
     Route: 048
     Dates: start: 20120903
  3. AMITRIPTYLINE [Suspect]
     Dosage: 10 mg
  4. ASPIRIN [Concomitant]
     Dosage: 75 mg
     Route: 048
  5. GLICLAZIDE [Concomitant]
     Dosage: 80 mg
     Route: 048
  6. LATANOPROST [Concomitant]
  7. MACROGOL [Concomitant]
     Dosage: 1 DF
     Route: 048
  8. METFORMIN [Concomitant]
     Dosage: 1 g
     Route: 048
  9. PARACETAMOL [Concomitant]
     Dosage: 1 g
     Route: 048
  10. RANITIDINE [Concomitant]
     Dosage: 150 mg
     Route: 048
  11. SOLIFENACIN [Concomitant]
     Dosage: 10 mg
     Route: 048
  12. VILDAGLIPTIN [Concomitant]
     Dosage: 50 mg
     Route: 048

REACTIONS (1)
  - Hyponatraemia [Recovering/Resolving]
